FAERS Safety Report 4646014-8 (Version None)
Quarter: 2005Q2

REPORT INFORMATION
  Report Type: 
  Country: None (occurrence: None)
  Receive Date: 20050422
  Receipt Date: 20050422
  Transmission Date: 20051028
  Serious: Yes (Hospitalization)
  Sender: FDA-Public Use
  Company Number: None

PATIENT
  Age: 67 Year
  Sex: Male
  Weight: 90.5 kg

DRUGS (2)
  1. GEMCITABINE [Suspect]
     Indication: NON-SMALL CELL LUNG CANCER
     Dosage: 1000MG/M2   INTRAVENOUS
     Route: 042
     Dates: start: 20050418, end: 20050418
  2. CARBOPLATIN [Suspect]
     Indication: NON-SMALL CELL LUNG CANCER
     Dosage: AUC 5  INTRAVENOUS
     Route: 042
     Dates: start: 20050418, end: 20050418

REACTIONS (2)
  - OBSTRUCTIVE AIRWAYS DISORDER [None]
  - PNEUMONIA [None]
